FAERS Safety Report 10225006 (Version 1)
Quarter: 2014Q2

REPORT INFORMATION
  Report Type: Spontaneous
  Country: DE (occurrence: DE)
  Receive Date: 20140609
  Receipt Date: 20140609
  Transmission Date: 20141212
  Serious: Yes (Other)
  Sender: FDA-Public Use
  Company Number: DE-TEVA-484626GER

PATIENT
  Age: 51 Year
  Sex: Male

DRUGS (1)
  1. PAROXETIN [Suspect]
     Dosage: 0-40 MG
     Route: 048
     Dates: start: 201302, end: 20130512

REACTIONS (3)
  - Restless legs syndrome [Recovered/Resolved]
  - Sleep disorder [Recovered/Resolved]
  - Fatigue [Recovered/Resolved]
